FAERS Safety Report 14688583 (Version 1)
Quarter: 2018Q1

REPORT INFORMATION
  Report Type: Spontaneous
  Country: US (occurrence: US)
  Receive Date: 20180328
  Receipt Date: 20180328
  Transmission Date: 20180509
  Serious: Yes (Other)
  Sender: FDA-Public Use
  Company Number: US-PFIZER INC-2018119868

PATIENT
  Age: 74 Year
  Sex: Female

DRUGS (2)
  1. TIKOSYN [Suspect]
     Active Substance: DOFETILIDE
     Dosage: 0.5 MG, 2X/DAY
     Dates: start: 20171215
  2. VICODIN [Suspect]
     Active Substance: ACETAMINOPHEN\HYDROCODONE BITARTRATE
     Dosage: UNK

REACTIONS (6)
  - Atrial fibrillation [Unknown]
  - Extrasystoles [Unknown]
  - Pruritus [Unknown]
  - Arrhythmia [Unknown]
  - Blood creatinine increased [Unknown]
  - Oxygen saturation [Unknown]
